FAERS Safety Report 20162841 (Version 1)
Quarter: 2021Q4

REPORT INFORMATION
  Report Type: Report from Study
  Country: CN (occurrence: CN)
  Receive Date: 20211209
  Receipt Date: 20211209
  Transmission Date: 20220303
  Serious: Yes (Hospitalization, Other)
  Sender: FDA-Public Use
  Company Number: CN-SUN PHARMACEUTICAL INDUSTRIES LTD-2021R1-319353

PATIENT
  Age: 35 Year
  Sex: Male
  Weight: 71.5 kg

DRUGS (1)
  1. TILDRAKIZUMAB [Suspect]
     Active Substance: TILDRAKIZUMAB
     Indication: Psoriasis
     Dosage: 100 MILLIGRAM, DAILY
     Route: 058
     Dates: start: 20210319, end: 20210319

REACTIONS (2)
  - Ureterolithiasis [Recovering/Resolving]
  - Renal hydrocele [Recovering/Resolving]

NARRATIVE: CASE EVENT DATE: 20211102
